FAERS Safety Report 8050467-5 (Version None)
Quarter: 2012Q1

REPORT INFORMATION
  Report Type: 
  Country: None (occurrence: None)
  Receive Date: 20120111
  Receipt Date: 20111228
  Transmission Date: 20120608
  Serious: Yes (Hospitalization, Other)
  Sender: FDA-Public Use
  Company Number: 2011MA018170

PATIENT
  Sex: Male
  Weight: 65.5448 kg

DRUGS (11)
  1. DIOVAN [Concomitant]
  2. TOPROL-XL [Concomitant]
  3. PRATHNINE [Concomitant]
  4. CHLOROZAIRTE [Concomitant]
  5. POTASSIUM CHLORIDE [Concomitant]
  6. FUROSEMIDE [Concomitant]
  7. ADVAIR DISKUS 250/50 [Concomitant]
  8. COUMADIN [Concomitant]
  9. PREVACID [Concomitant]
  10. DIGOXIN [Suspect]
     Indication: CARDIAC DISORDER
     Dosage: 0.25 MG;QD
     Dates: start: 20080218, end: 20080611
  11. XOPENEX [Concomitant]

REACTIONS (20)
  - ELECTROCARDIOGRAM POOR R-WAVE PROGRESSION [None]
  - AORTIC CALCIFICATION [None]
  - DYSPNOEA [None]
  - NAUSEA [None]
  - GAIT DISTURBANCE [None]
  - VOMITING [None]
  - HEART RATE INCREASED [None]
  - AORTIC ARTERIOSCLEROSIS [None]
  - DIZZINESS [None]
  - BLOOD PRESSURE INCREASED [None]
  - BLOOD GLUCOSE INCREASED [None]
  - CARDIOMEGALY [None]
  - ATRIAL FIBRILLATION [None]
  - SINUS BRADYCARDIA [None]
  - HEART RATE IRREGULAR [None]
  - CARDIAC FLUTTER [None]
  - CHEST DISCOMFORT [None]
  - HYPERHIDROSIS [None]
  - PULMONARY CONGESTION [None]
  - CEREBELLAR ATROPHY [None]
